FAERS Safety Report 9030985 (Version 2)
Quarter: 2013Q2

REPORT INFORMATION
  Report Type: Spontaneous
  Country: US (occurrence: US)
  Receive Date: 20130123
  Receipt Date: 20130401
  Transmission Date: 20140414
  Serious: Yes (Hospitalization, Other)
  Sender: FDA-Public Use
  Company Number: US-ROCHE-661431

PATIENT
  Age: 29 Year
  Sex: Female
  Weight: 62.65 kg

DRUGS (2)
  1. ACCUTANE [Suspect]
     Indication: ACNE
     Route: 065
     Dates: start: 199601, end: 199606
  2. AZELEX [Concomitant]

REACTIONS (7)
  - Colitis ulcerative [Unknown]
  - Nephrolithiasis [Unknown]
  - Gastrointestinal injury [Unknown]
  - Inflammatory bowel disease [Unknown]
  - Depression [Unknown]
  - Lip dry [Unknown]
  - Lip exfoliation [Unknown]
